FAERS Safety Report 4388882-3 (Version None)
Quarter: 2004Q2

REPORT INFORMATION
  Report Type: 
  Country: None (occurrence: None)
  Receive Date: 20040628
  Receipt Date: 20040616
  Transmission Date: 20050107
  Serious: Yes (Hospitalization)
  Sender: FDA-Public Use
  Company Number: WAES 0406KOR00009

PATIENT
  Age: 72 Year
  Sex: Female

DRUGS (9)
  1. COZAAR [Suspect]
     Indication: CARDIAC FAILURE
     Dosage: SEE IMAGE
     Route: 048
     Dates: start: 20040115, end: 20040522
  2. COZAAR [Suspect]
     Indication: CARDIAC FAILURE
     Dosage: SEE IMAGE
     Route: 048
     Dates: start: 20040528
  3. DIGOXIN [Concomitant]
  4. FEXOFENADINE HYDROCHLORIDE [Concomitant]
  5. ITOPRIDE HYDROCHLORIDE [Concomitant]
  6. SPIRONOLACTONE [Concomitant]
  7. TORSEMIDE [Concomitant]
  8. VALSARTAN [Concomitant]
  9. ZIPEPROL HYDROCHLORIDE [Concomitant]

REACTIONS (2)
  - DIARRHOEA [None]
  - INTESTINAL PERFORATION [None]
